FAERS Safety Report 9288467 (Version 2)
Quarter: 2013Q2

REPORT INFORMATION
  Report Type: Spontaneous
  Country: BE (occurrence: BE)
  Receive Date: 20130514
  Receipt Date: 20130607
  Transmission Date: 20140414
  Serious: Yes (Other)
  Sender: FDA-Public Use
  Company Number: BE-B.I. PHARMACEUTICALS,INC./RIDGEFIELD-2013-BL-00228BL

PATIENT
  Age: 76 Year
  Sex: Female
  Weight: 73 kg

DRUGS (5)
  1. TRAJENTA [Suspect]
     Indication: DIABETES MELLITUS
     Route: 048
     Dates: start: 20130326, end: 20130328
  2. GLUCOPHAGE [Concomitant]
     Indication: DIABETES MELLITUS
     Dosage: 2550 NR
     Route: 048
  3. UNIDIAMICRON [Concomitant]
     Indication: DIABETES MELLITUS
     Dosage: 120 NR
     Route: 048
  4. LIPITOR [Concomitant]
     Indication: DYSLIPIDAEMIA
     Dosage: 40 NR
     Route: 048
  5. CO-LISINOPRIL [Concomitant]
     Indication: HYPERTENSION
     Dosage: 1 G
     Route: 048

REACTIONS (1)
  - Urticaria [Recovered/Resolved]
